FAERS Safety Report 9617686 (Version 2)
Quarter: 2013Q4

REPORT INFORMATION
  Report Type: Report from Study
  Country: US (occurrence: US)
  Receive Date: 20131011
  Receipt Date: 20131011
  Transmission Date: 20140711
  Serious: Yes (Other)
  Sender: FDA-Public Use
  Company Number: US-ABBVIE-13P-163-1133309-00

PATIENT
  Age: 37 Year
  Sex: Female
  Weight: 61.29 kg

DRUGS (4)
  1. HUMIRA [Suspect]
     Indication: COLITIS ULCERATIVE
     Route: 058
     Dates: start: 20130714, end: 20130714
  2. HUMIRA [Suspect]
  3. HUMIRA [Suspect]
     Dates: start: 20130811
  4. 6-MP [Concomitant]
     Indication: COLITIS ULCERATIVE
     Route: 048
     Dates: start: 20120306

REACTIONS (4)
  - Hysteroscopy [Recovered/Resolved]
  - Injection site erythema [Recovered/Resolved]
  - Injection site swelling [Recovered/Resolved]
  - Haemorrhage [Unknown]
